FAERS Safety Report 25454197 (Version 1)
Quarter: 2025Q2

REPORT INFORMATION
  Report Type: Spontaneous
  Country: SE (occurrence: SE)
  Receive Date: 20250619
  Receipt Date: 20250619
  Transmission Date: 20250717
  Serious: Yes (Death, Life-Threatening, Hospitalization, Disabling)
  Sender: TEVA
  Company Number: None

PATIENT
  Age: 72 Year
  Sex: Male

DRUGS (4)
  1. METFORMIN [Suspect]
     Active Substance: METFORMIN HYDROCHLORIDE
     Indication: Blood glucose increased
     Route: 065
     Dates: start: 2023, end: 202408
  2. XARELTO [Concomitant]
     Active Substance: RIVAROXABAN
     Indication: Product used for unknown indication
     Route: 065
  3. Candesarstad [Concomitant]
     Indication: Product used for unknown indication
     Route: 065
     Dates: start: 2008
  4. BISOPROLOL [Concomitant]
     Active Substance: BISOPROLOL
     Indication: Product used for unknown indication
     Route: 065
     Dates: start: 2008

REACTIONS (7)
  - Pneumonia [Fatal]
  - Asthenia [Fatal]
  - Muscular weakness [Fatal]
  - Myositis [Fatal]
  - Dyspnoea [Fatal]
  - Cough [Fatal]
  - Visual impairment [Fatal]

NARRATIVE: CASE EVENT DATE: 20230101
